FAERS Safety Report 21196219 (Version 1)
Quarter: 2022Q3

REPORT INFORMATION
  Report Type: Spontaneous
  Country: US (occurrence: US)
  Receive Date: 20220810
  Receipt Date: 20220810
  Transmission Date: 20221027
  Serious: Yes (Death, Other)
  Sender: FDA-Public Use
  Company Number: US-SLATE RUN PHARMACEUTICALS-22US001250

PATIENT

DRUGS (10)
  1. AZITHROMYCIN [Suspect]
     Active Substance: AZITHROMYCIN
     Indication: Mycobacterium abscessus infection
     Dosage: UNK
     Route: 042
  2. LINEZOLID [Suspect]
     Active Substance: LINEZOLID
     Indication: Mycobacterium abscessus infection
     Route: 042
  3. ERAVACYCLINE [Suspect]
     Active Substance: ERAVACYCLINE
     Indication: Mycobacterium abscessus infection
     Route: 042
  4. CEFEPIME [Concomitant]
     Active Substance: CEFEPIME HYDROCHLORIDE
     Indication: Pseudomonas infection
     Route: 042
  5. UNSPECIFIED INGREDIENT [Concomitant]
     Active Substance: UNSPECIFIED INGREDIENT
     Indication: HIV infection
  6. TEDIZOLID [Concomitant]
     Active Substance: TEDIZOLID
     Indication: Staphylococcal infection
     Route: 048
  7. TEDIZOLID [Concomitant]
     Active Substance: TEDIZOLID
     Indication: Klebsiella infection
  8. MINOCYCLINE [Concomitant]
     Active Substance: MINOCYCLINE HYDROCHLORIDE
     Indication: Staphylococcal infection
     Route: 048
  9. MINOCYCLINE [Concomitant]
     Active Substance: MINOCYCLINE HYDROCHLORIDE
     Indication: Klebsiella infection
  10. UNSPECIFIED INGREDIENT [Concomitant]
     Active Substance: UNSPECIFIED INGREDIENT
     Indication: Evidence based treatment

REACTIONS (8)
  - Multiple organ dysfunction syndrome [Fatal]
  - Shock [Fatal]
  - Mycobacterium abscessus infection [Unknown]
  - Bacteraemia [Unknown]
  - Lactic acidosis [Unknown]
  - Thrombocytopenia [Unknown]
  - Hypertransaminasaemia [Unknown]
  - Off label use [Unknown]
